FAERS Safety Report 7589574-X (Version None)
Quarter: 2011Q3

REPORT INFORMATION
  Report Type: 
  Country: None (occurrence: None)
  Receive Date: 20110705
  Receipt Date: 20110629
  Transmission Date: 20111222
  Serious: Yes (Hospitalization, Other)
  Sender: FDA-Public Use
  Company Number: US-TEVA-280848USA

PATIENT
  Sex: Female
  Weight: 61.29 kg

DRUGS (2)
  1. LIBRAX [Concomitant]
     Indication: IRRITABLE BOWEL SYNDROME
  2. PARAGARD T 380A [Suspect]
     Indication: CONTRACEPTION
     Route: 015
     Dates: start: 20070101, end: 20110207

REACTIONS (4)
  - PREGNANCY WITH CONTRACEPTIVE DEVICE [None]
  - DEVICE EXPULSION [None]
  - BLIGHTED OVUM [None]
  - DRUG INEFFECTIVE [None]
